FAERS Safety Report 23560796 (Version 3)
Quarter: 2024Q1

REPORT INFORMATION
  Report Type: Spontaneous
  Country: JP (occurrence: JP)
  Receive Date: 20240223
  Receipt Date: 20240322
  Transmission Date: 20240409
  Serious: Yes (Other)
  Sender: FDA-Public Use
  Company Number: JP-BEH-2024168627

PATIENT
  Sex: Male

DRUGS (8)
  1. HIZENTRA [Suspect]
     Active Substance: HUMAN IMMUNOGLOBULIN G
     Indication: Multifocal motor neuropathy
     Dosage: 100 MILLILITER, QW
     Route: 058
     Dates: start: 20220317, end: 20220407
  2. HIZENTRA [Suspect]
     Active Substance: HUMAN IMMUNOGLOBULIN G
     Dosage: 100 MILLILITER, QW
     Route: 058
     Dates: start: 20220616, end: 20220629
  3. HIZENTRA [Suspect]
     Active Substance: HUMAN IMMUNOGLOBULIN G
     Dosage: 60 MILLILITER, SINGLE
     Route: 058
     Dates: start: 20220706, end: 20220706
  4. HIZENTRA [Suspect]
     Active Substance: HUMAN IMMUNOGLOBULIN G
     Dosage: 40 MILLILITER, SINGLE
     Route: 058
     Dates: start: 20220706, end: 20220706
  5. HIZENTRA [Suspect]
     Active Substance: HUMAN IMMUNOGLOBULIN G
     Dosage: UNK
     Route: 058
  6. PRIVIGEN [Suspect]
     Active Substance: HUMAN IMMUNOGLOBULIN G
     Indication: Multifocal motor neuropathy
     Dosage: UNK
     Route: 042
  7. PRIVIGEN [Suspect]
     Active Substance: HUMAN IMMUNOGLOBULIN G
     Dosage: ADMINISTRATION WITH ONE WEEK OF HOSPITALIZATION EVERY MONTH
     Route: 042
  8. PRIVIGEN [Suspect]
     Active Substance: HUMAN IMMUNOGLOBULIN G
     Dosage: ROUTINE INFUSION WITH HOSPITALIZATION EVERY 3 MONTHS
     Route: 041

REACTIONS (13)
  - Therapeutic response decreased [Unknown]
  - Multifocal motor neuropathy [Unknown]
  - Poor venous access [Unknown]
  - Muscular weakness [Unknown]
  - Swelling [Unknown]
  - Pruritus [Unknown]
  - Swelling [Unknown]
  - Pruritus [Unknown]
  - Swelling [Unknown]
  - Pruritus [Unknown]
  - Swelling [Unknown]
  - Swelling [Unknown]
  - Multifocal motor neuropathy [Unknown]

NARRATIVE: CASE EVENT DATE: 20220317
